FAERS Safety Report 13961486 (Version 1)
Quarter: 2017Q3

REPORT INFORMATION
  Report Type: Report from Study
  Country: US (occurrence: US)
  Receive Date: 20170912
  Receipt Date: 20170912
  Transmission Date: 20171128
  Serious: Yes (Other)
  Sender: FDA-Public Use
  Company Number: US-BAYER-2017-169166

PATIENT
  Sex: Male

DRUGS (3)
  1. MAGNEVIST [Suspect]
     Active Substance: GADOPENTETATE DIMEGLUMINE
     Indication: ARTHROPATHY
  2. MAGNEVIST [Suspect]
     Active Substance: GADOPENTETATE DIMEGLUMINE
     Indication: NUCLEAR MAGNETIC RESONANCE IMAGING
     Dosage: UNK UNK, ONCE
     Dates: start: 1996, end: 2003
  3. MAGNEVIST [Suspect]
     Active Substance: GADOPENTETATE DIMEGLUMINE
     Indication: BACK DISORDER
     Dosage: UNK UNK, ONCE
     Dates: start: 2007

REACTIONS (17)
  - Insomnia [Recovering/Resolving]
  - Visual impairment [Recovering/Resolving]
  - Hypertension [Recovering/Resolving]
  - Dysuria [Recovering/Resolving]
  - Gadolinium deposition disease [Recovering/Resolving]
  - Paraesthesia [Recovering/Resolving]
  - Chills [Recovering/Resolving]
  - Weight decreased [Recovering/Resolving]
  - Muscle twitching [Recovering/Resolving]
  - Cardiac disorder [Recovering/Resolving]
  - Tremor [Recovering/Resolving]
  - Feeling cold [Recovering/Resolving]
  - Muscle spasms [Recovering/Resolving]
  - Heart rate irregular [Recovering/Resolving]
  - Malaise [Recovering/Resolving]
  - Dysphagia [Recovering/Resolving]
  - Hypoaesthesia [Recovering/Resolving]
